FAERS Safety Report 25690320 (Version 2)
Quarter: 2025Q3

REPORT INFORMATION
  Report Type: Spontaneous
  Country: US (occurrence: US)
  Receive Date: 20250818
  Receipt Date: 20250905
  Transmission Date: 20251020
  Serious: No
  Sender: TAKEDA
  Company Number: US-TAKEDA-2025TUS070759

PATIENT
  Age: 44 Year
  Sex: Female

DRUGS (2)
  1. GLASSIA [Suspect]
     Active Substance: .ALPHA.1-PROTEINASE INHIBITOR HUMAN
     Indication: Alpha-1 antitrypsin deficiency
     Dosage: 4490 MILLIGRAM, 1/WEEK
     Dates: start: 20250527
  2. GLASSIA [Suspect]
     Active Substance: .ALPHA.1-PROTEINASE INHIBITOR HUMAN
     Dosage: 8 GRAM, 1/WEEK

REACTIONS (3)
  - Cystitis [Recovering/Resolving]
  - Stress at work [Unknown]
  - Headache [Unknown]

NARRATIVE: CASE EVENT DATE: 20250803
